FAERS Safety Report 9179170 (Version 1)
Quarter: 2012Q4

REPORT INFORMATION
  Report Type: 
  Country: US (occurrence: US)
  Receive Date: 20121029
  Receipt Date: 20121029
  Transmission Date: 20130627
  Serious: No
  Sender: FDA-Public Use
  Company Number: US-AMGEN-USASP2012052633

PATIENT
  Age: 60 Year
  Sex: Female
  Weight: 90.7 kg

DRUGS (9)
  1. ENBREL [Suspect]
     Indication: PRODUCT USED FOR UNKNOWN INDICATION
     Dosage: 50 mg, qwk
     Route: 058
  2. SINGULAIR [Concomitant]
     Dosage: 10 mg, UNK
  3. SERTRALIN                          /01011401/ [Concomitant]
     Dosage: 25 mg, UNK
  4. OMEPRAZOLE [Concomitant]
     Dosage: 20 mg, UNK
  5. LOSARTAN/HCT [Concomitant]
     Dosage: 50-12.5
  6. BUPROPION HCL [Concomitant]
     Dosage: 150 mg, UNK
  7. VITAMIN B-12 [Concomitant]
     Dosage: 1000 UNK, UNK
  8. POTASSIUM [Concomitant]
     Dosage: 75 mg, UNK
  9. SUPER B COMPL [Concomitant]
     Dosage: UNK

REACTIONS (1)
  - Urinary tract infection [Unknown]
